FAERS Safety Report 21179016 (Version 1)
Quarter: 2022Q3

REPORT INFORMATION
  Report Type: Spontaneous
  Country: JP (occurrence: JP)
  Receive Date: 20220805
  Receipt Date: 20220805
  Transmission Date: 20221026
  Serious: Yes (Death)
  Sender: FDA-Public Use
  Company Number: JP-SUNOVION-2022SMP006461

PATIENT

DRUGS (1)
  1. LATUDA [Suspect]
     Active Substance: LURASIDONE HYDROCHLORIDE
     Indication: Neuropsychiatric symptoms
     Dosage: UNK
     Route: 048

REACTIONS (2)
  - Coronavirus infection [Fatal]
  - Off label use [Unknown]
